FAERS Safety Report 9467042 (Version 3)
Quarter: 2013Q3

REPORT INFORMATION
  Report Type: Report from Study
  Country: CN (occurrence: CN)
  Receive Date: 20130820
  Receipt Date: 20130916
  Transmission Date: 20140515
  Serious: Yes (Hospitalization)
  Sender: FDA-Public Use
  Company Number: CN-B.I. PHARMACEUTICALS,INC./RIDGEFIELD-2013-RU-00210BP

PATIENT
  Age: 49 Year
  Sex: Male
  Weight: 59 kg

DRUGS (2)
  1. BI 1744 [Suspect]
     Indication: CHRONIC OBSTRUCTIVE PULMONARY DISEASE
     Dosage: 5 MCG
     Route: 055
     Dates: start: 20120709, end: 20130304
  2. BI 1744 [Suspect]
     Indication: CHRONIC OBSTRUCTIVE PULMONARY DISEASE
     Dosage: 5 MCG
     Route: 055
     Dates: start: 20120709, end: 20130304

REACTIONS (1)
  - Chronic obstructive pulmonary disease [Recovered/Resolved]
